FAERS Safety Report 16564464 (Version 2)
Quarter: 2020Q2

REPORT INFORMATION
  Report Type: Spontaneous
  Country: GB (occurrence: GB)
  Receive Date: 20190712
  Receipt Date: 20200406
  Transmission Date: 20200713
  Serious: Yes (Hospitalization, Other)
  Sender: FDA-Public Use
  Company Number: GB-AUROBINDO-AUR-APL-2019-040005

PATIENT
  Age: 61 Year
  Sex: Female
  Weight: 47.62 kg

DRUGS (7)
  1. ROPINIROLE. [Concomitant]
     Active Substance: ROPINIROLE
     Indication: PRODUCT USED FOR UNKNOWN INDICATION
     Dosage: 0.5 MILLIGRAM
     Route: 065
  2. COCODAMOL [Concomitant]
     Active Substance: ACETAMINOPHEN\CODEINE PHOSPHATE
     Indication: PRODUCT USED FOR UNKNOWN INDICATION
     Dosage: UNK
     Route: 065
  3. EVOREL CONTI [Concomitant]
     Active Substance: ESTRADIOL\NORETHINDRONE ACETATE
     Indication: PRODUCT USED FOR UNKNOWN INDICATION
     Dosage: UNK
     Route: 065
  4. ESCITALOPRAM [Suspect]
     Active Substance: ESCITALOPRAM OXALATE
     Indication: DEPRESSION
     Dosage: STARTED ON 5MG INCREASING TO 15MG ONCE A DAY IN THE MORNING
     Route: 048
     Dates: start: 20190417
  5. ESCITALOPRAM [Suspect]
     Active Substance: ESCITALOPRAM OXALATE
     Dosage: MORNING
     Route: 048
     Dates: end: 20190607
  6. DIAZEPAM. [Concomitant]
     Active Substance: DIAZEPAM
     Indication: PRODUCT USED FOR UNKNOWN INDICATION
     Dosage: AT NIGHT.
     Route: 065
  7. FEXOFENADINE [Concomitant]
     Active Substance: FEXOFENADINE HYDROCHLORIDE
     Indication: PRODUCT USED FOR UNKNOWN INDICATION
     Dosage: UNK
     Route: 065

REACTIONS (8)
  - Gingival bleeding [Recovered/Resolved]
  - Skin reaction [Recovered/Resolved]
  - Breast tenderness [Recovering/Resolving]
  - Breast pain [Recovered/Resolved]
  - Bleeding time prolonged [Recovered/Resolved]
  - Postmenopausal haemorrhage [Recovered/Resolved]
  - Spider naevus [Recovered/Resolved]
  - Breast swelling [Recovering/Resolving]

NARRATIVE: CASE EVENT DATE: 20190506
